FAERS Safety Report 13282846 (Version 1)
Quarter: 2017Q1

REPORT INFORMATION
  Report Type: Spontaneous
  Country: US (occurrence: US)
  Receive Date: 20170301
  Receipt Date: 20170301
  Transmission Date: 20170428
  Serious: No
  Sender: FDA-Public Use
  Company Number: US-ABBVIE-16K-163-1677024-00

PATIENT
  Sex: Male
  Weight: 80.74 kg

DRUGS (8)
  1. ANDROGEL [Suspect]
     Active Substance: TESTOSTERONE
     Indication: BLOOD TESTOSTERONE DECREASED
     Route: 061
  2. LYRICA [Concomitant]
     Active Substance: PREGABALIN
     Route: 048
  3. LYRICA [Concomitant]
     Active Substance: PREGABALIN
     Route: 048
     Dates: start: 20150523
  4. OMEPRAZOLE. [Concomitant]
     Active Substance: OMEPRAZOLE
     Indication: DYSPEPSIA
     Dosage: TAKING THE PRODUCT FOR TEN YEARS
     Route: 048
  5. LYRICA [Concomitant]
     Active Substance: PREGABALIN
     Indication: NEUROPATHY PERIPHERAL
     Route: 048
     Dates: start: 2013
  6. LYRICA [Concomitant]
     Active Substance: PREGABALIN
     Route: 048
     Dates: start: 2014
  7. MINOCYCLINE [Concomitant]
     Active Substance: MINOCYCLINE\MINOCYCLINE HYDROCHLORIDE
     Indication: ROSACEA
     Route: 048
     Dates: start: 2010
  8. ETODOLAC. [Concomitant]
     Active Substance: ETODOLAC
     Indication: ARTHRITIS
     Dosage: UNSURE OF THE EXACT START DATE, BUT IT WAS A LONG TIME AGO
     Route: 048

REACTIONS (1)
  - Drug ineffective [Unknown]
